FAERS Safety Report 9660717 (Version 1)
Quarter: 2013Q4

REPORT INFORMATION
  Report Type: Spontaneous
  Country: US (occurrence: US)
  Receive Date: 20131031
  Receipt Date: 20131031
  Transmission Date: 20140711
  Serious: Yes (Other)
  Sender: FDA-Public Use
  Company Number: US-PFIZER INC-2013309526

PATIENT
  Age: 75 Year
  Sex: Female

DRUGS (1)
  1. MOTRIN IB [Suspect]
     Dosage: UNK
     Route: 065

REACTIONS (3)
  - Memory impairment [Unknown]
  - Senile dementia [Unknown]
  - Drug hypersensitivity [Unknown]
